FAERS Safety Report 25795157 (Version 1)
Quarter: 2025Q3

REPORT INFORMATION
  Report Type: Spontaneous
  Country: US (occurrence: US)
  Receive Date: 20250912
  Receipt Date: 20250912
  Transmission Date: 20251020
  Serious: No
  Sender: BIOGEN
  Company Number: US-BIOGEN-2020BI00887546

PATIENT
  Sex: Female

DRUGS (5)
  1. TECFIDERA [Suspect]
     Active Substance: DIMETHYL FUMARATE
     Indication: Multiple sclerosis
     Route: 050
     Dates: start: 20130612, end: 20210106
  2. CLONAZEPAM [Concomitant]
     Active Substance: CLONAZEPAM
     Route: 050
  3. SINGULAIR [Concomitant]
     Active Substance: MONTELUKAST SODIUM
     Route: 050
  4. TIZANIDINE HYDROCHLORIDE [Concomitant]
     Active Substance: TIZANIDINE HYDROCHLORIDE
     Route: 050
  5. CLARITIN [Concomitant]
     Active Substance: LORATADINE
     Route: 050

REACTIONS (5)
  - Product dose omission in error [Unknown]
  - Memory impairment [Unknown]
  - Skin irritation [Unknown]
  - Pruritus [Unknown]
  - Lymphocyte count decreased [Recovered/Resolved]
